FAERS Safety Report 12728547 (Version 1)
Quarter: 2016Q3

REPORT INFORMATION
  Report Type: Spontaneous
  Country: FR (occurrence: FR)
  Receive Date: 20160909
  Receipt Date: 20160909
  Transmission Date: 20161109
  Serious: Yes (Hospitalization)
  Sender: FDA-Public Use
  Company Number: FR-BAXTER-2016BAX045613

PATIENT
  Age: 13 Year
  Sex: Female
  Weight: 43 kg

DRUGS (13)
  1. HOLOXAN 2000 MG, POUDRE POUR USAGE PARENT?RAL [Suspect]
     Active Substance: IFOSFAMIDE
     Indication: EWING^S SARCOMA
     Dosage: FIRST COURSE
     Route: 042
  2. UROMITEXAN 5 G/50 ML, SOLUTION INJECTABLE POUR PERFUSION EN FLACON [Suspect]
     Active Substance: MESNA
     Indication: PRODUCT USED FOR UNKNOWN INDICATION
     Route: 042
     Dates: start: 20160623, end: 20160625
  3. DOXORUBICIN TEVA [Suspect]
     Active Substance: DOXORUBICIN
     Dosage: SECOND COURSE
     Route: 042
     Dates: start: 20160623, end: 20160625
  4. METHYLPREDNISOLONE MYLAN [Suspect]
     Active Substance: METHYLPREDNISOLONE
     Indication: PRODUCT USED FOR UNKNOWN INDICATION
     Dosage: INFUSION
     Route: 042
     Dates: start: 20160623, end: 20160625
  5. DOXORUBICIN TEVA [Suspect]
     Active Substance: DOXORUBICIN
     Indication: EWING^S SARCOMA
     Dosage: FIRST COURSE
     Route: 042
  6. VINCRISTINE HOSPIRA [Suspect]
     Active Substance: VINCRISTINE
     Dosage: SECOND COURSE, INFUSION
     Route: 042
     Dates: start: 20160623, end: 20160625
  7. BIONOLYTE [Concomitant]
     Active Substance: UNSPECIFIED INGREDIENT
     Indication: PRODUCT USED FOR UNKNOWN INDICATION
     Route: 065
  8. VINCRISTINE HOSPIRA [Suspect]
     Active Substance: VINCRISTINE
     Indication: EWING^S SARCOMA
     Dosage: FIRST COURSE, INFUSION
     Route: 042
  9. ETOPOSIDE TEVA [Suspect]
     Active Substance: ETOPOSIDE
     Dosage: SECOND COURSE, INFUSION
     Route: 042
     Dates: start: 20160623, end: 20160625
  10. HOLOXAN 2000 MG, POUDRE POUR USAGE PARENT?RAL [Suspect]
     Active Substance: IFOSFAMIDE
     Dosage: SECOND COURSE
     Route: 042
     Dates: start: 20160623, end: 20160625
  11. ETOPOSIDE TEVA [Suspect]
     Active Substance: ETOPOSIDE
     Indication: EWING^S SARCOMA
     Dosage: FIRST COURSE, INFUSION
     Route: 042
  12. ZOPHREN [Suspect]
     Active Substance: ONDANSETRON
     Indication: PRODUCT USED FOR UNKNOWN INDICATION
     Route: 042
     Dates: start: 20160623, end: 20160625
  13. VOGALENE [Suspect]
     Active Substance: METOPIMAZINE
     Indication: PRODUCT USED FOR UNKNOWN INDICATION
     Route: 042
     Dates: start: 20160623, end: 20160625

REACTIONS (4)
  - Febrile bone marrow aplasia [Recovered/Resolved]
  - Decreased appetite [Recovered/Resolved]
  - Anal inflammation [Recovered/Resolved]
  - Mucosal inflammation [Recovered/Resolved]

NARRATIVE: CASE EVENT DATE: 20160701
